FAERS Safety Report 8207416-6 (Version None)
Quarter: 2012Q1

REPORT INFORMATION
  Report Type: 
  Country: None (occurrence: None)
  Receive Date: 20120312
  Receipt Date: 20120228
  Transmission Date: 20120608
  Serious: Yes (Hospitalization)
  Sender: FDA-Public Use
  Company Number: 2012-0568

PATIENT
  Age: 53 Year
  Sex: Female

DRUGS (1)
  1. DYSPORT [Suspect]
     Indication: HEMIPLEGIA
     Dates: start: 20110901, end: 20110901

REACTIONS (3)
  - SEPSIS [None]
  - URINARY TRACT INFECTION [None]
  - LOWER RESPIRATORY TRACT INFECTION [None]
